FAERS Safety Report 9120945 (Version 1)
Quarter: 2013Q1

REPORT INFORMATION
  Report Type: Spontaneous
  Country: FR (occurrence: FR)
  Receive Date: 20130226
  Receipt Date: 20130226
  Transmission Date: 20140127
  Serious: Yes (Other)
  Sender: FDA-Public Use
  Company Number: FR-GLAXOSMITHKLINE-B0869936A

PATIENT
  Sex: Female

DRUGS (1)
  1. TYVERB [Suspect]
     Indication: BREAST CANCER
     Route: 048

REACTIONS (1)
  - Cardiotoxicity [Unknown]
